FAERS Safety Report 17409783 (Version 2)
Quarter: 2020Q1

REPORT INFORMATION
  Report Type: Spontaneous
  Country: US (occurrence: US)
  Receive Date: 20200212
  Receipt Date: 20200309
  Transmission Date: 20200409
  Serious: No
  Sender: FDA-Public Use
  Company Number: US-PFIZER INC-2020019487

PATIENT
  Age: 66 Year
  Sex: Female
  Weight: 49.9 kg

DRUGS (4)
  1. ROBITUSSIN COUGH AND CHEST CONGESTION SUGAR FREE DM [Suspect]
     Active Substance: DEXTROMETHORPHAN HYDROBROMIDE\GUAIFENESIN
     Dosage: UNK UNK, 2X/DAY (EVEN LESS THAN THE FIRST DOSE OF A LITTLE LESS THAN 20ML, DAY AND NIGHT)
     Route: 048
     Dates: start: 20200113
  2. ROBITUSSIN COUGH AND CHEST CONGESTION SUGAR FREE DM [Suspect]
     Active Substance: DEXTROMETHORPHAN HYDROBROMIDE\GUAIFENESIN
     Indication: SPUTUM INCREASED
     Dosage: UNK UNK, 2X/DAY (A LITTLE LESS THAN 20ML, DAY AND NIGHT)
     Route: 048
     Dates: start: 202001
  3. ROBITUSSIN COUGH AND CHEST CONGESTION SUGAR FREE DM [Suspect]
     Active Substance: DEXTROMETHORPHAN HYDROBROMIDE\GUAIFENESIN
     Dosage: 20 MG, UNK (TOOK RECOMMENDED DOSE)
     Route: 048
     Dates: start: 20200128
  4. ROBITUSSIN COUGH AND CHEST CONGESTION SUGAR FREE DM [Suspect]
     Active Substance: DEXTROMETHORPHAN HYDROBROMIDE\GUAIFENESIN
     Dosage: 10 MG, 2X/DAY
     Route: 048
     Dates: start: 202001, end: 202001

REACTIONS (5)
  - Dyspnoea [Recovered/Resolved]
  - Product taste abnormal [Recovered/Resolved]
  - Heart rate increased [Recovered/Resolved]
  - Dry throat [Recovered/Resolved]
  - Incorrect dose administered [Recovered/Resolved]

NARRATIVE: CASE EVENT DATE: 202001
